FAERS Safety Report 7939469-4 (Version None)
Quarter: 2011Q4

REPORT INFORMATION
  Report Type: 
  Country: None (occurrence: None)
  Receive Date: 20111125
  Receipt Date: 20111122
  Transmission Date: 20120403
  Serious: Yes (Hospitalization)
  Sender: FDA-Public Use
  Company Number: DE-ROCHE-1003344

PATIENT
  Sex: Male
  Weight: 70 kg

DRUGS (10)
  1. XELODA [Suspect]
     Indication: COLON CANCER
     Route: 048
     Dates: start: 20111006, end: 20111007
  2. XELODA [Suspect]
     Dates: start: 20111027
  3. METOCLOPRAMIDE [Concomitant]
  4. RAMIPRIL [Concomitant]
  5. HYDROCHLOROTHIAZIDE [Concomitant]
  6. OXALIPLATIN [Suspect]
     Indication: COLON CANCER
     Route: 042
     Dates: start: 20111006
  7. TAMSULOSIN HCL [Concomitant]
  8. AMLODIPINE [Concomitant]
  9. AVASTIN [Suspect]
     Indication: COLON CANCER
     Dosage: 7.5 MG/KG
     Route: 042
     Dates: start: 20111006
  10. METFORMIN [Concomitant]
     Dosage: 2 X 1000 MG

REACTIONS (3)
  - CHILLS [None]
  - HYPERTENSION [None]
  - PYREXIA [None]
